FAERS Safety Report 6050198-7 (Version None)
Quarter: 2009Q1

REPORT INFORMATION
  Report Type: 
  Country: None (occurrence: None)
  Receive Date: 20090122
  Receipt Date: 20090122
  Transmission Date: 20090719
  Serious: Yes (Hospitalization)
  Sender: FDA-Public Use
  Company Number: None

PATIENT
  Age: 78 Year
  Sex: Female

DRUGS (2)
  1. VANCOMYCIN HCL [Suspect]
     Indication: CARDIAC OPERATION
     Dosage: 1 GRAM ONE TIME IV
     Route: 042
     Dates: start: 20070626, end: 20070626
  2. VANCOMYCIN HCL [Suspect]
     Indication: PROPHYLAXIS
     Dosage: 1 GRAM ONE TIME IV
     Route: 042
     Dates: start: 20070626, end: 20070626

REACTIONS (3)
  - CHEST PAIN [None]
  - DRUG HYPERSENSITIVITY [None]
  - LOSS OF CONSCIOUSNESS [None]
